FAERS Safety Report 13699002 (Version 2)
Quarter: 2017Q3

REPORT INFORMATION
  Report Type: Spontaneous
  Country: JP (occurrence: JP)
  Receive Date: 20170628
  Receipt Date: 20170907
  Transmission Date: 20171127
  Serious: Yes (Other)
  Sender: FDA-Public Use
  Company Number: JP-MYLANLABS-2017M1037592

PATIENT
  Age: 12 Year
  Sex: Female

DRUGS (5)
  1. PREDNISOLONE. [Suspect]
     Active Substance: PREDNISOLONE
     Dosage: 40 UNK, UNK
     Route: 065
  2. MIZORIBINE [Suspect]
     Active Substance: MIZORIBINE
     Indication: HENOCH-SCHONLEIN PURPURA NEPHRITIS
     Route: 065
  3. PREDNISOLONE. [Suspect]
     Active Substance: PREDNISOLONE
     Indication: NEPHROTIC SYNDROME
     Dosage: 60 MG, QD
     Route: 065
  4. PREDNISOLONE. [Suspect]
     Active Substance: PREDNISOLONE
     Dosage: 60 MG, QOD
     Route: 065
  5. DILAZEP [Suspect]
     Active Substance: DILAZEP
     Indication: HENOCH-SCHONLEIN PURPURA NEPHRITIS
     Route: 065

REACTIONS (2)
  - Henoch-Schonlein purpura nephritis [Unknown]
  - Glaucoma [Recovering/Resolving]
